FAERS Safety Report 23539666 (Version 2)
Quarter: 2024Q3

REPORT INFORMATION
  Report Type: Spontaneous
  Country: DE (occurrence: DE)
  Receive Date: 20240219
  Receipt Date: 20240813
  Transmission Date: 20241016
  Serious: Yes (Hospitalization, Other)
  Sender: SANDOZ
  Company Number: DE-ROCHE-2130154

PATIENT
  Age: 47 Year
  Sex: Female

DRUGS (32)
  1. OCREVUS [Suspect]
     Active Substance: OCRELIZUMAB
     Dosage: 600 MG IN ONCE IN 190 DAYS600 MG 200 DAYS
     Route: 042
     Dates: start: 20180515
  2. OCREVUS [Suspect]
     Active Substance: OCRELIZUMAB
     Indication: Relapsing-remitting multiple sclerosis
     Dosage: 300 MG
     Route: 042
     Dates: start: 20180529
  3. OCREVUS [Suspect]
     Active Substance: OCRELIZUMAB
     Dosage: 212 DAYS
     Route: 042
     Dates: start: 20210630
  4. OCREVUS [Suspect]
     Active Substance: OCRELIZUMAB
     Dosage: 600.000MG
     Route: 042
     Dates: start: 20181112
  5. OCREVUS [Suspect]
     Active Substance: OCRELIZUMAB
     Dosage: 600.000MG
     Route: 042
     Dates: start: 20190514
  6. OCREVUS [Suspect]
     Active Substance: OCRELIZUMAB
     Dosage: 600.000MG
     Route: 042
     Dates: start: 20200528
  7. OCREVUS [Suspect]
     Active Substance: OCRELIZUMAB
     Dosage: 600.000MG
     Route: 042
     Dates: start: 20201130
  8. OCREVUS [Suspect]
     Active Substance: OCRELIZUMAB
     Dosage: 600.000MG
     Route: 042
  9. OCREVUS [Suspect]
     Active Substance: OCRELIZUMAB
     Dosage: NEXT DOSE: 28/MAY/2020: 600 MG
     Route: 042
     Dates: start: 20191118
  10. PANTOPRAZOLE SODIUM [Suspect]
     Active Substance: PANTOPRAZOLE SODIUM
     Indication: Product used for unknown indication
     Dosage: 20 MG, QD (1-0-0)
     Route: 065
  11. CROMOLYN SODIUM\REPROTEROL HYDROCHLORIDE [Concomitant]
     Active Substance: CROMOLYN SODIUM\REPROTEROL HYDROCHLORIDE
     Indication: Product used for unknown indication
     Dosage: UNK
     Route: 065
  12. ALLOPURINOL [Concomitant]
     Active Substance: ALLOPURINOL
     Indication: Product used for unknown indication
     Dosage: 150 MG, QD
     Route: 065
  13. ALLOPURINOL [Concomitant]
     Active Substance: ALLOPURINOL
     Dosage: UNK
     Route: 065
  14. BACLOFEN [Concomitant]
     Active Substance: BACLOFEN
     Indication: Muscle spasticity
     Dosage: 10 MG, BID (0.33 DAYS), 1-0-1
     Route: 048
  15. BACLOFEN [Concomitant]
     Active Substance: BACLOFEN
     Dosage: 10 MG, BID (0.33 DAYS), 1-0-1
     Route: 065
  16. BACLOFEN [Concomitant]
     Active Substance: BACLOFEN
     Dosage: 10 MG (0.5 DAYS)
     Route: 065
  17. BACLOFEN [Concomitant]
     Active Substance: BACLOFEN
     Dosage: UNK
     Route: 065
  18. CANDESARTAN [Concomitant]
     Active Substance: CANDESARTAN
     Indication: Product used for unknown indication
     Dosage: 5 MG, QD (1-0-0)
     Route: 048
  19. CANDESARTAN [Concomitant]
     Active Substance: CANDESARTAN
     Dosage: UNK
     Route: 065
  20. CITALOPRAM [Concomitant]
     Active Substance: CITALOPRAM\CITALOPRAM HYDROBROMIDE
     Indication: Depression
     Dosage: 10 MG, QD
     Route: 048
  21. CITALOPRAM [Concomitant]
     Active Substance: CITALOPRAM\CITALOPRAM HYDROBROMIDE
     Dosage: UNK
     Route: 065
  22. Comirnaty [Concomitant]
     Dosage: 1ST VACCINE
     Route: 065
     Dates: start: 20210409, end: 20210409
  23. Comirnaty [Concomitant]
     Dosage: 1ST VACCINE
     Route: 065
     Dates: start: 20210409, end: 20210409
  24. Comirnaty [Concomitant]
     Indication: Product used for unknown indication
     Dosage: 2ND VACCINE
     Route: 065
     Dates: start: 20210521, end: 20210521
  25. Comirnaty [Concomitant]
     Dosage: 2ND VACCINE
     Route: 065
     Dates: start: 20210521, end: 20210521
  26. GABAPENTIN [Concomitant]
     Active Substance: GABAPENTIN
     Indication: Muscle spasticity
     Dosage: 300 MG, TID, 0.33 DAYS, (1-1-1)
     Route: 065
  27. GABAPENTIN [Concomitant]
     Active Substance: GABAPENTIN
     Dosage: 1-1-1
     Route: 065
  28. GABAPENTIN [Concomitant]
     Active Substance: GABAPENTIN
     Dosage: 600 MG, BID (0.5 DAYS) (1-0-1)
     Route: 065
  29. GABAPENTIN [Concomitant]
     Active Substance: GABAPENTIN
     Dosage: 1-0-1
     Route: 065
  30. Novalgin [Concomitant]
     Indication: Product used for unknown indication
     Dosage: AS REQUIRED
     Route: 065
  31. VIMPAT [Concomitant]
     Active Substance: LACOSAMIDE
     Indication: Epilepsy
     Dosage: 50 MG, BID (1-0-1)
     Route: 048
  32. VIMPAT [Concomitant]
     Active Substance: LACOSAMIDE
     Dosage: UNK
     Route: 065

REACTIONS (35)
  - Osteonecrosis [Not Recovered/Not Resolved]
  - Osteonecrosis [Unknown]
  - Osteonecrosis [Recovered/Resolved]
  - Pneumonia [Unknown]
  - Platelet count decreased [Recovered/Resolved]
  - Cervical spinal stenosis [Recovered/Resolved]
  - Tumour marker increased [Recovered/Resolved]
  - Hypertension [Unknown]
  - Dermatitis allergic [Recovered/Resolved]
  - Palpitations [Recovered/Resolved]
  - Nasopharyngitis [Not Recovered/Not Resolved]
  - Dry eye [Not Recovered/Not Resolved]
  - Otitis media [Recovered/Resolved]
  - Seasonal allergy [Recovered/Resolved]
  - Balance disorder [Recovered/Resolved]
  - Lipoedema [Not Recovered/Not Resolved]
  - COVID-19 [Recovered/Resolved]
  - Erythema [Recovered/Resolved]
  - Sjogren^s syndrome [Not Recovered/Not Resolved]
  - White blood cell count increased [Recovered/Resolved]
  - Infection susceptibility increased [Not Recovered/Not Resolved]
  - Peripheral swelling [Recovering/Resolving]
  - Fatigue [Recovered/Resolved]
  - Platelet count decreased [Recovered/Resolved]
  - Fatigue [Not Recovered/Not Resolved]
  - Asthenia [Recovered/Resolved]
  - Arthralgia [Recovered/Resolved]
  - Rash pruritic [Recovered/Resolved]
  - Muscle spasms [Recovered/Resolved]
  - Eye inflammation [Not Recovered/Not Resolved]
  - Cognitive disorder [Recovered/Resolved]
  - Weight increased [Not Recovered/Not Resolved]
  - Stress [Not Recovered/Not Resolved]
  - Gait disturbance [Recovered/Resolved]
  - Fatigue [Not Recovered/Not Resolved]

NARRATIVE: CASE EVENT DATE: 20180529
